FAERS Safety Report 11489927 (Version 2)
Quarter: 2015Q3

REPORT INFORMATION
  Report Type: Spontaneous
  Country: KE (occurrence: KE)
  Receive Date: 20150910
  Receipt Date: 20150930
  Transmission Date: 20151125
  Serious: Yes (Death)
  Sender: FDA-Public Use
  Company Number: KE-ASTRAZENECA-2015SE86292

PATIENT
  Sex: Male

DRUGS (7)
  1. TENORMIN [Concomitant]
     Active Substance: ATENOLOL
  2. GALVUS MET [Concomitant]
     Active Substance: METFORMIN HYDROCHLORIDE\VILDAGLIPTIN
     Dosage: 50/500
  3. CRESTOR [Concomitant]
     Active Substance: ROSUVASTATIN CALCIUM
  4. IRBESARTAN. [Concomitant]
     Active Substance: IRBESARTAN
  5. BRILINTA [Suspect]
     Active Substance: TICAGRELOR
     Dosage: 88TABLETS
     Route: 048
  6. ALLOPURINOL. [Concomitant]
     Active Substance: ALLOPURINOL
  7. BRILINTA [Suspect]
     Active Substance: TICAGRELOR
     Dosage: 84TABLETS
     Route: 048

REACTIONS (1)
  - Myocardial infarction [Fatal]
